FAERS Safety Report 5127954-2 (Version None)
Quarter: 2006Q4

REPORT INFORMATION
  Report Type: 
  Country: None (occurrence: None)
  Receive Date: 20061013
  Receipt Date: 20061013
  Transmission Date: 20070319
  Serious: Yes (Hospitalization)
  Sender: FDA-Public Use
  Company Number: None

PATIENT
  Sex: Female
  Weight: 83.0083 kg

DRUGS (5)
  1. TEMODAR [Suspect]
     Indication: BRAIN NEOPLASM
     Dosage: 390 MG  5 DAY MONTHLY
     Dates: start: 20060227, end: 20060818
  2. LISINOPRIL [Concomitant]
  3. DIFLUCAN [Concomitant]
  4. KEPPRA [Concomitant]
  5. DECADRON [Concomitant]

REACTIONS (2)
  - BRAIN NEOPLASM [None]
  - NEOPLASM RECURRENCE [None]
